FAERS Safety Report 21635461 (Version 1)
Quarter: 2022Q4

REPORT INFORMATION
  Report Type: Report from Study
  Country: US (occurrence: US)
  Receive Date: 20221123
  Receipt Date: 20221123
  Transmission Date: 20230113
  Serious: Yes (Other)
  Sender: FDA-Public Use
  Company Number: US-SA-SAC20221118001766

PATIENT
  Age: 72 Year
  Sex: Male

DRUGS (7)
  1. BELUMOSUDIL MESYLATE [Suspect]
     Active Substance: BELUMOSUDIL MESYLATE
     Indication: Graft versus host disease
     Dosage: 200 MG, QD
     Route: 048
     Dates: start: 20220809
  2. KEPPRA [Concomitant]
     Active Substance: LEVETIRACETAM
     Dosage: KEPPRA 500MG IN AM AND 750 PM
  3. SYSTANE (HYPROMELLOSE 2910 (4000 MPA.S)) [Concomitant]
     Active Substance: HYPROMELLOSE 2910 (4000 MPA.S)
  4. ACYCLOVIR [Concomitant]
     Active Substance: ACYCLOVIR
     Dosage: 400MG BID
  5. IRON [Concomitant]
     Active Substance: IRON
  6. VITAMIN B12 [Concomitant]
     Active Substance: CYANOCOBALAMIN
  7. VITAMIN E [Concomitant]
     Active Substance: .ALPHA.-TOCOPHEROL

REACTIONS (6)
  - Squamous cell carcinoma [Unknown]
  - Basal cell carcinoma [Unknown]
  - Dry mouth [Recovering/Resolving]
  - Dry eye [Recovering/Resolving]
  - Dry skin [Recovering/Resolving]
  - Joint stiffness [Unknown]
